FAERS Safety Report 17478024 (Version 3)
Quarter: 2020Q1

REPORT INFORMATION
  Report Type: Spontaneous
  Country: US (occurrence: US)
  Receive Date: 20200229
  Receipt Date: 20200316
  Transmission Date: 20200409
  Serious: No
  Sender: FDA-Public Use
  Company Number: US-TEVA-2020-US-1190991

PATIENT

DRUGS (2)
  1. NORTRIPTYLINE HYDROCHLORIDE. [Suspect]
     Active Substance: NORTRIPTYLINE HYDROCHLORIDE
     Indication: MIGRAINE
     Dosage: STARTED 3 YEARS AGO?TABLET/CAPSULE IMPRINT :  RANGEAND WHITE WITH MGS IMPRINT
     Route: 065
     Dates: start: 201805
  2. NORTRIPTYLINE HYDROCHLORIDE. [Suspect]
     Active Substance: NORTRIPTYLINE HYDROCHLORIDE
     Indication: DEPRESSION

REACTIONS (2)
  - Drug ineffective [Unknown]
  - Tinnitus [Unknown]
